FAERS Safety Report 6542823-9 (Version None)
Quarter: 2010Q1

REPORT INFORMATION
  Report Type: 
  Country: None (occurrence: None)
  Receive Date: 20100114
  Receipt Date: 20091226
  Transmission Date: 20100710
  Serious: Yes (Hospitalization, Other)
  Sender: FDA-Public Use
  Company Number: JPI-P-009455

PATIENT
  Sex: Female

DRUGS (2)
  1. LUVOX [Suspect]
     Indication: DRUG EXPOSURE DURING PREGNANCY
     Dosage: (75 MG,1 D),TRANSPLACENTAL
     Route: 064
     Dates: end: 20091201
  2. ETHYL LOFLAZEPATE [Concomitant]

REACTIONS (6)
  - DRUG WITHDRAWAL SYNDROME NEONATAL [None]
  - HYPOTONIA NEONATAL [None]
  - LETHARGY [None]
  - MATERNAL DRUGS AFFECTING FOETUS [None]
  - NEONATAL RESPIRATORY DEPRESSION [None]
  - SOMNOLENCE NEONATAL [None]
